FAERS Safety Report 5343630-5 (Version None)
Quarter: 2007Q2

REPORT INFORMATION
  Report Type: 
  Country: None (occurrence: None)
  Receive Date: 20070531
  Receipt Date: 20070515
  Transmission Date: 20071010
  Serious: Yes (Hospitalization, Other)
  Sender: FDA-Public Use
  Company Number: 2007JP002196

PATIENT
  Age: 36 Year
  Sex: Male

DRUGS (4)
  1. PROGRAF [Suspect]
     Indication: TRANSPLANT
     Dates: start: 20060619
  2. MYCOPHENOLATE MOFETIL [Suspect]
     Dates: start: 20060406
  3. PREDNISONE TAB [Suspect]
  4. CYCLOSPORINE [Concomitant]

REACTIONS (7)
  - EPSTEIN-BARR VIRUS ANTIBODY POSITIVE [None]
  - HEPATIC LESION [None]
  - LIVER FUNCTION TEST ABNORMAL [None]
  - LUNG NEOPLASM [None]
  - LYMPHOPROLIFERATIVE DISORDER [None]
  - NON-HODGKIN'S LYMPHOMA [None]
  - URETERIC STENOSIS [None]
